FAERS Safety Report 9820576 (Version 1)
Quarter: 2013Q4

REPORT INFORMATION
  Report Type: Spontaneous
  Country: US (occurrence: None)
  Receive Date: 20131028
  Receipt Date: 20131028
  Transmission Date: 20140711
  Serious: Yes (Other)
  Sender: FDA-Public Use
  Company Number: 2013US001730

PATIENT
  Age: 45 Year
  Sex: Female

DRUGS (1)
  1. ICLUSIG [Suspect]
     Indication: CHRONIC MYELOID LEUKAEMIA
     Route: 048
     Dates: start: 20130518, end: 20130603

REACTIONS (5)
  - Face oedema [None]
  - Skin exfoliation [None]
  - Erythema [None]
  - Abdominal pain upper [None]
  - Fatigue [None]
